FAERS Safety Report 7345564-3 (Version None)
Quarter: 2011Q1

REPORT INFORMATION
  Report Type: 
  Country: None (occurrence: None)
  Receive Date: 20110310
  Receipt Date: 20110301
  Transmission Date: 20110831
  Serious: Yes (Other)
  Sender: FDA-Public Use
  Company Number: GB-GENENTECH-314686

PATIENT
  Age: 45 Year
  Sex: Female

DRUGS (3)
  1. RITUXIMAB [Suspect]
     Indication: RHEUMATOID ARTHRITIS
     Dosage: UNK
     Route: 065
  2. ACYCLOVIR [Concomitant]
     Indication: ULCERATIVE KERATITIS
     Dosage: UNK
     Route: 048
  3. ACYCLOVIR [Concomitant]
     Dosage: UNK
     Route: 047

REACTIONS (1)
  - ULCERATIVE KERATITIS [None]
